FAERS Safety Report 7457110-4 (Version None)
Quarter: 2011Q2

REPORT INFORMATION
  Report Type: 
  Country: None (occurrence: None)
  Receive Date: 20110504
  Receipt Date: 20110421
  Transmission Date: 20111010
  Serious: Yes (Other)
  Sender: FDA-Public Use
  Company Number: US-ELI_LILLY_AND_COMPANY-US201010001079

PATIENT
  Sex: Female

DRUGS (1)
  1. FORTEO [Suspect]
     Indication: OSTEOPOROSIS
     Dosage: UNK, UNKNOWN

REACTIONS (5)
  - LUNG DISORDER [None]
  - TOOTHACHE [None]
  - INJECTION SITE HAEMATOMA [None]
  - TOTAL LUNG CAPACITY ABNORMAL [None]
  - SINUS DISORDER [None]
